FAERS Safety Report 23054866 (Version 2)
Quarter: 2023Q4

REPORT INFORMATION
  Report Type: Spontaneous
  Country: GB (occurrence: None)
  Receive Date: 20231011
  Receipt Date: 20231122
  Transmission Date: 20240110
  Serious: Yes (Hospitalization)
  Sender: FDA-Public Use
  Company Number: 2023A225587

PATIENT
  Age: 66 Year
  Sex: Female

DRUGS (1)
  1. FASENRA [Suspect]
     Active Substance: BENRALIZUMAB
     Indication: Asthma
     Dosage: 30ML/KG EVERY FOUR WEEKS
     Route: 058

REACTIONS (2)
  - Supraventricular tachycardia [Unknown]
  - Arthralgia [Recovering/Resolving]
